FAERS Safety Report 6439904 (Version 3)
Quarter: 2013Q4

REPORT INFORMATION
  Report Type: Spontaneous
  Country: US (occurrence: US)
  Receive Date: 20071011
  Receipt Date: 20131106
  Transmission Date: 20140711
  Serious: Yes (Other)
  Sender: FDA-Public Use
  Company Number: US-ASTRAZENECA-2007UW23357

PATIENT
  Age: 75 Year
  Sex: Female
  Weight: 71.7 kg

DRUGS (5)
  1. SYMBICORT [Suspect]
     Indication: PNEUMONITIS
     Dosage: 160/4.5 UG 2 PUFFS BID
     Route: 055
     Dates: start: 20070825, end: 201309
  2. SYMBICORT [Suspect]
     Indication: BRONCHIAL IRRITATION
     Dosage: 160/4.5 UG 2 PUFFS BID
     Route: 055
     Dates: start: 20070825, end: 201309
  3. ARIMIDEX [Concomitant]
  4. ASPIRIN [Concomitant]
  5. SUPPLEMENTS [Concomitant]

REACTIONS (9)
  - Arterial thrombosis [Not Recovered/Not Resolved]
  - Vision blurred [Not Recovered/Not Resolved]
  - Eye disorder [Not Recovered/Not Resolved]
  - Adverse event [Unknown]
  - Glossodynia [Unknown]
  - Stomatitis [Unknown]
  - Dysphonia [Unknown]
  - Off label use [Unknown]
  - Intentional drug misuse [Unknown]
